FAERS Safety Report 8620494-5 (Version None)
Quarter: 2012Q3

REPORT INFORMATION
  Report Type: 
  Country: None (occurrence: None)
  Receive Date: 20120824
  Receipt Date: 20120816
  Transmission Date: 20120928
  Serious: Yes (Other)
  Sender: FDA-Public Use
  Company Number: US-ABBOTT-12P-163-0969554-00

PATIENT
  Age: 62 Year
  Sex: Female

DRUGS (10)
  1. AMLODIPINE [Concomitant]
     Indication: PRODUCT USED FOR UNKNOWN INDICATION
  2. CELEXA [Concomitant]
     Indication: DEPRESSION
  3. CARVEDILOL [Concomitant]
     Indication: PRODUCT USED FOR UNKNOWN INDICATION
  4. LOSARTAN POTASSIUM [Concomitant]
     Indication: PRODUCT USED FOR UNKNOWN INDICATION
  5. HUMIRA [Suspect]
     Indication: PSORIASIS
  6. LIPITOR [Suspect]
     Indication: PRODUCT USED FOR UNKNOWN INDICATION
     Dates: end: 20120701
  7. NOPALEA [Concomitant]
     Indication: INFLAMMATION
     Dates: start: 20120807
  8. LOTREL [Suspect]
     Indication: PRODUCT USED FOR UNKNOWN INDICATION
  9. POTASSIUM [Concomitant]
     Indication: PRODUCT USED FOR UNKNOWN INDICATION
  10. ZETIA [Suspect]
     Indication: PRODUCT USED FOR UNKNOWN INDICATION
     Dates: start: 20120713

REACTIONS (7)
  - URTICARIA [None]
  - PSORIASIS [None]
  - PHARYNGEAL OEDEMA [None]
  - ANGLE CLOSURE GLAUCOMA [None]
  - DRUG EFFECT DECREASED [None]
  - DRY EYE [None]
  - MUSCULOSKELETAL DISCOMFORT [None]
